FAERS Safety Report 15604685 (Version 1)
Quarter: 2018Q4

REPORT INFORMATION
  Report Type: Spontaneous
  Country: US (occurrence: US)
  Receive Date: 20181109
  Receipt Date: 20181109
  Transmission Date: 20190205
  Serious: No
  Sender: FDA-Public Use
  Company Number: None

PATIENT
  Age: 64 Year
  Sex: Female

DRUGS (1)
  1. TUBERCULIN PURIFIED PROTEIN DERIVATIVE [Suspect]
     Active Substance: TUBERCULIN PURIFIED PROTEIN DERIVATIVE
     Indication: TUBERCULIN TEST
     Dosage: ?          OTHER FREQUENCY:ONCE;?
     Route: 023
     Dates: start: 20181108

REACTIONS (4)
  - Pain [None]
  - Erythema [None]
  - Skin irritation [None]
  - Pruritus [None]

NARRATIVE: CASE EVENT DATE: 20181108
